FAERS Safety Report 5291274-6 (Version None)
Quarter: 2007Q2

REPORT INFORMATION
  Report Type: 
  Country: None (occurrence: None)
  Receive Date: 20070409
  Receipt Date: 20070326
  Transmission Date: 20071010
  Serious: Yes (Other)
  Sender: FDA-Public Use
  Company Number: US-PFIZER INC-2006130295

PATIENT
  Sex: Male

DRUGS (3)
  1. BEXTRA [Suspect]
     Indication: ARTHRITIS
     Dates: start: 20041008
  2. BEXTRA [Suspect]
     Indication: PAIN
  3. VIOXX [Suspect]
     Dates: start: 20030101, end: 20040901

REACTIONS (2)
  - DEPRESSION [None]
  - ISCHAEMIC STROKE [None]
